FAERS Safety Report 12138753 (Version 2)
Quarter: 2016Q1

REPORT INFORMATION
  Report Type: Spontaneous
  Country: CA (occurrence: CA)
  Receive Date: 20160302
  Receipt Date: 20160304
  Transmission Date: 20160526
  Serious: Yes (Death, Other)
  Sender: FDA-Public Use
  Company Number: CA-JNJFOC-20160227507

PATIENT
  Age: 69 Year
  Sex: Male
  Weight: 62.6 kg

DRUGS (8)
  1. KEPPRA [Concomitant]
     Active Substance: LEVETIRACETAM
     Route: 065
  2. GLICLAZIDE [Concomitant]
     Active Substance: GLICLAZIDE
     Route: 065
  3. ZYDELIG [Suspect]
     Active Substance: IDELALISIB
     Indication: CHRONIC LYMPHOCYTIC LEUKAEMIA
     Route: 065
  4. ZYDELIG [Suspect]
     Active Substance: IDELALISIB
     Indication: CHRONIC LYMPHOCYTIC LEUKAEMIA
     Route: 065
  5. VORICONAZOLE. [Concomitant]
     Active Substance: VORICONAZOLE
     Route: 065
  6. COVERSYL [Concomitant]
     Active Substance: PERINDOPRIL
     Route: 065
  7. LANSOPRAZOLE. [Concomitant]
     Active Substance: LANSOPRAZOLE
     Route: 065
  8. IMBRUVICA [Suspect]
     Active Substance: IBRUTINIB
     Indication: CHRONIC LYMPHOCYTIC LEUKAEMIA
     Route: 048

REACTIONS (26)
  - Blood albumin decreased [Unknown]
  - Blister [Unknown]
  - Erythema [Unknown]
  - Macrocytosis [Unknown]
  - White blood cell count increased [Unknown]
  - Aspergilloma [Unknown]
  - Asthenia [Unknown]
  - Lymphocyte count increased [Unknown]
  - Photosensitivity reaction [Unknown]
  - Facial paralysis [Unknown]
  - Ascites [Unknown]
  - Central nervous system lesion [Unknown]
  - Haemoglobin decreased [Unknown]
  - Brain oedema [Unknown]
  - Contusion [Unknown]
  - Death [Fatal]
  - Psoriasis [Unknown]
  - Abdominal distension [Unknown]
  - Decreased appetite [Unknown]
  - Rash [Unknown]
  - Skin irritation [Unknown]
  - Fatigue [Unknown]
  - Haematocrit decreased [Unknown]
  - Herpes zoster [Unknown]
  - Porphyria [Unknown]
  - Red blood cell count decreased [Unknown]
